FAERS Safety Report 5121289-X (Version None)
Quarter: 2006Q4

REPORT INFORMATION
  Report Type: 
  Country: None (occurrence: None)
  Receive Date: 20061002
  Receipt Date: 20060920
  Transmission Date: 20070319
  Serious: Yes (Other)
  Sender: FDA-Public Use
  Company Number: 2006104637

PATIENT
  Age: 54 Year
  Sex: Female
  Weight: 72.5755 kg

DRUGS (1)
  1. LYRICA [Suspect]
     Indication: HEADACHE
     Dosage: 100 MG (50 MG, 2 IN 1 D)
     Dates: start: 20060720, end: 20060808

REACTIONS (3)
  - DISCOMFORT [None]
  - DYSPHONIA [None]
  - THROAT TIGHTNESS [None]
